FAERS Safety Report 5127773-7 (Version None)
Quarter: 2006Q4

REPORT INFORMATION
  Report Type: 
  Country: None (occurrence: None)
  Receive Date: 20061016
  Receipt Date: 20060718
  Transmission Date: 20070319
  Serious: Yes (Hospitalization)
  Sender: FDA-Public Use
  Company Number: FR-AVENTIS-200612539FR

PATIENT
  Age: 78 Year
  Sex: Female

DRUGS (3)
  1. RIFADIN [Suspect]
     Indication: STAPHYLOCOCCAL INFECTION
     Route: 042
     Dates: start: 20060518, end: 20060604
  2. OFLOCET                            /00731801/ [Suspect]
     Indication: STAPHYLOCOCCAL INFECTION
     Route: 042
     Dates: start: 20060518, end: 20060604
  3. VANCOMYCIN [Suspect]
     Indication: STAPHYLOCOCCAL INFECTION
     Route: 042
     Dates: start: 20060518, end: 20060604

REACTIONS (10)
  - CHEILITIS [None]
  - EOSINOPHILIA [None]
  - ERYSIPELOID [None]
  - GAMMA-GLUTAMYLTRANSFERASE INCREASED [None]
  - PLATELET COUNT DECREASED [None]
  - PRURITUS [None]
  - RASH MORBILLIFORM [None]
  - RENAL FAILURE [None]
  - SKIN EXFOLIATION [None]
  - TOXIC SKIN ERUPTION [None]
